FAERS Safety Report 6993970-9 (Version None)
Quarter: 2010Q3

REPORT INFORMATION
  Report Type: 
  Country: None (occurrence: None)
  Receive Date: 20100917
  Receipt Date: 20100701
  Transmission Date: 20110219
  Serious: No
  Sender: FDA-Public Use
  Company Number: US-ASTRAZENECA-2007UW25220

PATIENT
  Age: 42 Year
  Sex: Female
  Weight: 150.1 kg

DRUGS (19)
  1. SEROQUEL [Suspect]
     Indication: BIPOLAR DISORDER
     Dosage: 100MG-400MG
     Route: 048
     Dates: start: 19980801, end: 20070401
  2. SEROQUEL [Suspect]
     Indication: SCHIZOAFFECTIVE DISORDER
     Dosage: 100MG-400MG
     Route: 048
     Dates: start: 19980801, end: 20070401
  3. SEROQUEL [Suspect]
     Dosage: 100MG-1200MG
     Route: 048
     Dates: start: 19981201, end: 20070601
  4. SEROQUEL [Suspect]
     Dosage: 100MG-1200MG
     Route: 048
     Dates: start: 19981201, end: 20070601
  5. SEROQUEL [Suspect]
     Dosage: 200 TO 600 MG
     Route: 048
     Dates: start: 19980813
  6. SEROQUEL [Suspect]
     Dosage: 200 TO 600 MG
     Route: 048
     Dates: start: 19980813
  7. RISPERDAL [Concomitant]
     Indication: BIPOLAR DISORDER
     Dosage: 25 MG TO 50 MG
     Route: 048
     Dates: start: 20060301, end: 20100401
  8. RISPERDAL [Concomitant]
     Indication: SCHIZOAFFECTIVE DISORDER
     Dosage: 25 MG TO 50 MG
     Route: 048
     Dates: start: 20060301, end: 20100401
  9. ZYPREXA [Concomitant]
     Indication: BIPOLAR DISORDER
     Dates: start: 19980801
  10. ZYPREXA [Concomitant]
     Indication: SCHIZOAFFECTIVE DISORDER
     Dates: start: 19980801
  11. ZYPREXA [Concomitant]
     Dosage: 10 TO 15 MG
     Dates: start: 19981229
  12. ZYPREXA [Concomitant]
     Dosage: 10 TO 15 MG
     Dates: start: 19981229
  13. KLONOPIN [Concomitant]
     Dosage: 2 TO 4 MG
     Dates: start: 19981117
  14. TEGRETOL [Concomitant]
     Dosage: 300 TO 800 MG
     Dates: start: 19981208
  15. LOXITANE [Concomitant]
     Dosage: 40 TO 100 MG
     Dates: start: 20010516
  16. WELLBUTRIN SR [Concomitant]
     Dosage: 100 TO 150 MG
     Dates: start: 20010516
  17. LITHIUM CARBONATE [Concomitant]
     Dates: start: 20010516
  18. ABILIFY [Concomitant]
     Dates: start: 20060101
  19. ZOLOFT [Concomitant]

REACTIONS (5)
  - CHRONIC OBSTRUCTIVE PULMONARY DISEASE [None]
  - DIABETES MELLITUS [None]
  - SLEEP APNOEA SYNDROME [None]
  - TYPE 1 DIABETES MELLITUS [None]
  - WEIGHT INCREASED [None]
